FAERS Safety Report 17969731 (Version 1)
Quarter: 2020Q3

REPORT INFORMATION
  Report Type: Spontaneous
  Country: AT (occurrence: AT)
  Receive Date: 20200701
  Receipt Date: 20200701
  Transmission Date: 20201103
  Serious: Yes (Other)
  Sender: FDA-Public Use
  Company Number: NVSC2020AT182824

PATIENT
  Age: 55 Year
  Sex: Male

DRUGS (1)
  1. REVOLADE [Suspect]
     Active Substance: ELTROMBOPAG
     Indication: IMMUNE THROMBOCYTOPENIA
     Dosage: 75 MG
     Route: 065

REACTIONS (5)
  - Myalgia [Unknown]
  - Vitreous disorder [Unknown]
  - Off label use [Unknown]
  - Haemorrhage [Unknown]
  - Drug ineffective [Unknown]
